FAERS Safety Report 16043874 (Version 1)
Quarter: 2019Q1

REPORT INFORMATION
  Report Type: Other
  Country: None (occurrence: US)
  Receive Date: 20190306
  Receipt Date: 20190306
  Transmission Date: 20190418
  Serious: Yes (Death, Hospitalization)
  Sender: FDA-Public Use
  Company Number: US-MEDAC PHARMA, INC.-2063628

PATIENT
  Age: 12 Year
  Sex: Female
  Weight: 43.4 kg

DRUGS (6)
  1. ONCASPAR [Suspect]
     Active Substance: PEGASPARGASE
  2. DAUNORUBICIN HYDROCHLORIDE. [Suspect]
     Active Substance: DAUNORUBICIN HYDROCHLORIDE
  3. METHOTREXATE. [Suspect]
     Active Substance: METHOTREXATE
  4. VINCRISTINE SULFATE. [Suspect]
     Active Substance: VINCRISTINE SULFATE
  5. CYTARABINE. [Suspect]
     Active Substance: CYTARABINE
  6. PREDNISONE. [Suspect]
     Active Substance: PREDNISONE

REACTIONS (22)
  - Gastrointestinal necrosis [Unknown]
  - Lethargy [Unknown]
  - Renal failure [Unknown]
  - Hyperglycaemia [Unknown]
  - Clostridium test positive [Unknown]
  - Hypoalbuminaemia [Unknown]
  - Multiple organ dysfunction syndrome [Fatal]
  - Pallor [Unknown]
  - Coagulopathy [Unknown]
  - Ascites [Unknown]
  - Inappropriate antidiuretic hormone secretion [Unknown]
  - Cardiac arrest [Fatal]
  - Colitis [Unknown]
  - Transaminases increased [Unknown]
  - Mental status changes [Unknown]
  - Hypothermia [Unknown]
  - Abdominal distension [Unknown]
  - Hepatic failure [Unknown]
  - Hyperbilirubinaemia [Unknown]
  - Abdominal pain [Unknown]
  - Pleural effusion [Unknown]
  - Nausea [Unknown]

NARRATIVE: CASE EVENT DATE: 20181124
